FAERS Safety Report 4560268-8 (Version None)
Quarter: 2005Q1

REPORT INFORMATION
  Report Type: 
  Country: None (occurrence: None)
  Receive Date: 20050120
  Receipt Date: 20050120
  Transmission Date: 20050727
  Serious: Yes (Life-Threatening, Hospitalization)
  Sender: FDA-Public Use
  Company Number: None

PATIENT
  Age: 46 Year
  Sex: Male
  Weight: 75.9 kg

DRUGS (6)
  1. THALIDOMIDE [Suspect]
     Indication: CHEMOTHERAPY
     Dosage: 400 MG DAILY PO ^RECENT^
     Route: 048
  2. CARBAMAZEPINE [Concomitant]
  3. WARFARIN SODIUM [Concomitant]
  4. VIT B12 [Concomitant]
  5. THALIDOMIDE [Concomitant]
  6. PROCARBAZINE [Concomitant]

REACTIONS (4)
  - ARTHRALGIA [None]
  - DEEP VEIN THROMBOSIS [None]
  - NECK PAIN [None]
  - PULMONARY EMBOLISM [None]
